FAERS Safety Report 11469178 (Version 2)
Quarter: 2015Q3

REPORT INFORMATION
  Report Type: Spontaneous
  Country: US (occurrence: US)
  Receive Date: 20150903
  Receipt Date: 20150903
  Transmission Date: 20151125
  Serious: No
  Sender: FDA-Public Use
  Company Number: US-ELI_LILLY_AND_COMPANY-US201110000352

PATIENT
  Age: 48 Year
  Sex: Female

DRUGS (3)
  1. MOTRIN [Concomitant]
     Active Substance: IBUPROFEN
  2. PREVACID [Concomitant]
     Active Substance: LANSOPRAZOLE
  3. CYMBALTA [Suspect]
     Active Substance: DULOXETINE HYDROCHLORIDE
     Indication: ARTHRALGIA
     Dosage: 30 MG, QD
     Dates: start: 20110926

REACTIONS (7)
  - Blood pressure decreased [Not Recovered/Not Resolved]
  - Hyperhidrosis [Unknown]
  - Dizziness [Unknown]
  - Decreased appetite [Unknown]
  - Off label use [Not Recovered/Not Resolved]
  - Asthenia [Unknown]
  - Nausea [Unknown]

NARRATIVE: CASE EVENT DATE: 20110926
